FAERS Safety Report 11228619 (Version 1)
Quarter: 2015Q2

REPORT INFORMATION
  Report Type: Spontaneous
  Country: CH (occurrence: None)
  Receive Date: 20150626
  Receipt Date: 20150626
  Transmission Date: 20150821
  Serious: Yes (Hospitalization, Other)
  Sender: FDA-Public Use
  Company Number: ES-2015EGA000084

PATIENT
  Age: 66 Year
  Sex: Male

DRUGS (10)
  1. BISOPROLOL [Concomitant]
     Active Substance: BISOPROLOL
  2. OXYCODONE HYDROCHLORIDE. [Suspect]
     Active Substance: OXYCODONE HYDROCHLORIDE
     Indication: PAIN
     Dosage: OVER 1500 MG PER DAY
  3. PARACETAMOL (PARACETAMOL) [Suspect]
     Active Substance: ACETAMINOPHEN
     Indication: PAIN
     Dosage: UP TO 2G PER DAY
  4. PANTOPRAZOLE [Concomitant]
     Active Substance: PANTOPRAZOLE SODIUM
  5. RISPERIDON (RISPERIDONE) [Concomitant]
  6. TORASEMID (TORASEMIDE) [Concomitant]
     Active Substance: TORSEMIDE
  7. INSULIN [Concomitant]
     Active Substance: INSULIN NOS
  8. DULOXETINE [Concomitant]
     Active Substance: DULOXETINE
  9. HYDROXINE (HYDROCORTISONE ACETATE, PRAMOCAINE HYDROCHLORIDE) [Concomitant]
  10. DIMETINDENE [Concomitant]
     Active Substance: DIMETHINDENE

REACTIONS (29)
  - Major depression [None]
  - Oedema peripheral [None]
  - C-reactive protein increased [None]
  - Anhedonia [None]
  - Asthenia [None]
  - Glial scar [None]
  - Hyporeflexia [None]
  - Disturbance in attention [None]
  - Glycosylated haemoglobin increased [None]
  - Exostosis [None]
  - Memory impairment [None]
  - Hirsutism [None]
  - Pruritus [None]
  - Intentional overdose [None]
  - Gamma-glutamyltransferase increased [None]
  - Anaemia [None]
  - Blood pressure increased [None]
  - Personality change due to a general medical condition [None]
  - Polyneuropathy [None]
  - Neuropsychiatric syndrome [None]
  - Constipation [None]
  - Drug withdrawal syndrome [None]
  - Drug abuse [None]
  - Blood glucose increased [None]
  - Activities of daily living impaired [None]
  - White matter lesion [None]
  - Obesity [None]
  - Blood creatinine increased [None]
  - Erythropenia [None]
